FAERS Safety Report 5947681-9 (Version None)
Quarter: 2008Q4

REPORT INFORMATION
  Report Type: 
  Country: None (occurrence: None)
  Receive Date: 20081111
  Receipt Date: 20081104
  Transmission Date: 20090506
  Serious: Yes (Other)
  Sender: FDA-Public Use
  Company Number: IE-RANBAXY-2008RR-19001

PATIENT
  Age: 23 Year
  Sex: Male

DRUGS (4)
  1. NIMESULIDE [Suspect]
  2. CEFTRIAXONE [Suspect]
  3. CEFUROXIME [Suspect]
  4. BETAMETHASONE [Suspect]

REACTIONS (1)
  - HEPATIC FAILURE [None]
